FAERS Safety Report 9147426 (Version 2)
Quarter: 2013Q1

REPORT INFORMATION
  Report Type: Report from Study
  Country: CA (occurrence: CA)
  Receive Date: 20130307
  Receipt Date: 20130325
  Transmission Date: 20140127
  Serious: Yes (Life-Threatening, Hospitalization)
  Sender: FDA-Public Use
  Company Number: CA-GLAXOSMITHKLINE-R0023804A

PATIENT
  Age: 15 Year
  Sex: Female

DRUGS (2)
  1. HPV 16-18 [Suspect]
     Indication: PROPHYLAXIS
     Route: 030
     Dates: start: 20120207, end: 20120207
  2. ZYBAN [Suspect]
     Indication: INTENTIONAL OVERDOSE
     Dosage: 6000MG PER DAY
     Route: 048
     Dates: start: 20130107, end: 20130107

REACTIONS (2)
  - Intentional overdose [Recovered/Resolved]
  - Convulsion [Recovered/Resolved]
